FAERS Safety Report 19418179 (Version 1)
Quarter: 2021Q2

REPORT INFORMATION
  Report Type: Spontaneous
  Country: US (occurrence: US)
  Receive Date: 20210614
  Receipt Date: 20210614
  Transmission Date: 20210717
  Serious: Yes (Other)
  Sender: FDA-Public Use
  Company Number: None

PATIENT
  Age: 70 Year
  Sex: Male
  Weight: 83.91 kg

DRUGS (7)
  1. VIT D [Concomitant]
     Active Substance: VITAMIN D NOS
  2. LISINOPRIL. [Concomitant]
     Active Substance: LISINOPRIL
  3. REPATHA [Concomitant]
     Active Substance: EVOLOCUMAB
  4. PLAVIX [Concomitant]
     Active Substance: CLOPIDOGREL BISULFATE
  5. ASA [Concomitant]
     Active Substance: ASPIRIN
  6. TYLENOL [Suspect]
     Active Substance: ACETAMINOPHEN
  7. CANNABIS INFUSED GUMMIES PLUS?BALANCE (CBD\THC) [Suspect]
     Active Substance: CANNABIDIOL\.DELTA.8-TETRAHYDROCANNABINOL\HERBALS
     Indication: INSOMNIA
     Dosage: ?          QUANTITY:1 DF DOSAGE FORM;?
     Route: 048
     Dates: start: 20210201, end: 20210505

REACTIONS (2)
  - Drug interaction [None]
  - Hepatitis acute [None]

NARRATIVE: CASE EVENT DATE: 20210507
